FAERS Safety Report 8928037 (Version 1)
Quarter: 2012Q4

REPORT INFORMATION
  Report Type: Spontaneous
  Country: US (occurrence: None)
  Receive Date: 20121126
  Receipt Date: 20121126
  Transmission Date: 20130627
  Serious: Yes (Hospitalization, Disabling, Other)
  Sender: FDA-Public Use
  Company Number: None

PATIENT
  Sex: Female
  Weight: 96.16 kg

DRUGS (6)
  1. THORAZINE [Suspect]
     Dates: start: 20020905, end: 20120701
  2. HALDOL SHOT FORM GIVEN UNSURE TO SUBDUE PATIENT [Concomitant]
  3. RISPERDOL [Concomitant]
  4. ZYPREXA [Concomitant]
  5. THORAZINE [Concomitant]
  6. HALDOL [Concomitant]

REACTIONS (1)
  - Hallucination, auditory [None]
